FAERS Safety Report 11144556 (Version 1)
Quarter: 2015Q2

REPORT INFORMATION
  Report Type: Spontaneous
  Country: US (occurrence: None)
  Receive Date: 20150526
  Receipt Date: 20150526
  Transmission Date: 20150821
  Serious: No
  Sender: FDA-Public Use
  Company Number: None

PATIENT
  Age: 66 Year
  Sex: Female
  Weight: 56.7 kg

DRUGS (2)
  1. WAL ZAN 150 [Suspect]
     Active Substance: RANITIDINE HYDROCHLORIDE
     Indication: GASTROOESOPHAGEAL REFLUX DISEASE
     Dosage: 2 TABLETS TWICE DAILY TAKEN BY MOUTH
     Route: 048
     Dates: start: 20150515, end: 20150519
  2. WAL ZAN 150 [Suspect]
     Active Substance: RANITIDINE HYDROCHLORIDE
     Indication: DYSPEPSIA
     Dosage: 2 TABLETS TWICE DAILY TAKEN BY MOUTH
     Route: 048
     Dates: start: 20150515, end: 20150519

REACTIONS (3)
  - Nausea [None]
  - Gingival pain [None]
  - Noninfective gingivitis [None]

NARRATIVE: CASE EVENT DATE: 20150515
